FAERS Safety Report 5219292-4 (Version None)
Quarter: 2007Q1

REPORT INFORMATION
  Report Type: 
  Country: None (occurrence: None)
  Receive Date: 20070123
  Receipt Date: 20070115
  Transmission Date: 20070707
  Serious: Yes (Other)
  Sender: FDA-Public Use
  Company Number: 151905ISR

PATIENT
  Age: 50 Year
  Sex: Female

DRUGS (1)
  1. LISINOPRIL [Suspect]
     Indication: BLOOD PRESSURE
     Dosage: (5 MG)
     Route: 048
     Dates: start: 20061016, end: 20061024

REACTIONS (1)
  - SYSTEMIC LUPUS ERYTHEMATOSUS [None]
